FAERS Safety Report 8910425 (Version 2)
Quarter: 2013Q1

REPORT INFORMATION
  Report Type: Spontaneous
  Country: US (occurrence: US)
  Receive Date: 20121115
  Receipt Date: 20130119
  Transmission Date: 20140127
  Serious: No
  Sender: FDA-Public Use
  Company Number: US-009507513-1211USA002492

PATIENT
  Sex: Male

DRUGS (2)
  1. NASONEX [Suspect]
     Indication: RHINITIS ALLERGIC
     Dosage: ONE SPRAY IN EACH NOSTRIL TAKEN ONCE DAILY
     Route: 045
  2. ANTIMICROBIAL (UNSPECIFIED) [Concomitant]

REACTIONS (2)
  - Erythema [Recovered/Resolved]
  - Pruritus generalised [Recovered/Resolved]
